FAERS Safety Report 5479578-5 (Version None)
Quarter: 2007Q4

REPORT INFORMATION
  Report Type: 
  Country: None (occurrence: None)
  Receive Date: 20071008
  Receipt Date: 20070924
  Transmission Date: 20080405
  Serious: Yes (Disabling, Other)
  Sender: FDA-Public Use
  Company Number: JP-BRISTOL-MYERS SQUIBB COMPANY-13902549

PATIENT
  Age: 17 Year
  Sex: Male

DRUGS (8)
  1. IFOMIDE [Suspect]
     Indication: BONE SARCOMA
     Route: 041
     Dates: start: 20070827, end: 20070829
  2. CARBOPLATIN [Concomitant]
     Indication: BONE SARCOMA
     Dates: start: 20070827, end: 20070829
  3. LASTET [Concomitant]
     Indication: BONE SARCOMA
     Dates: start: 20070827, end: 20070829
  4. UROMITEXAN [Concomitant]
     Indication: PROPHYLAXIS
     Dates: start: 20070827, end: 20070829
  5. MAGNESIUM SULFATE [Concomitant]
     Dates: start: 20070827, end: 20070829
  6. KYTRIL [Concomitant]
     Dates: start: 20070827, end: 20070829
  7. MANNITOL [Concomitant]
     Dates: start: 20070827, end: 20070829
  8. MEYLON [Concomitant]
     Dates: start: 20070827, end: 20070829

REACTIONS (1)
  - ENCEPHALOPATHY [None]
